FAERS Safety Report 6101469-7 (Version None)
Quarter: 2009Q1

REPORT INFORMATION
  Report Type: 
  Country: None (occurrence: None)
  Receive Date: 20090227
  Receipt Date: 20090217
  Transmission Date: 20090719
  Serious: Yes (Death)
  Sender: FDA-Public Use
  Company Number: 2008-04713

PATIENT
  Age: 55 Year
  Sex: Male
  Weight: 71.5 kg

DRUGS (23)
  1. VELCADE [Suspect]
     Indication: ACUTE MYELOID LEUKAEMIA
     Dosage: INTRAVENOUS
     Route: 042
     Dates: start: 20081016, end: 20081019
  2. FLUDARABINE PHOSPHATE [Suspect]
     Indication: ACUTE MYELOID LEUKAEMIA
     Dosage: 35 MG/M2, INTRAVENOUS
     Route: 042
     Dates: start: 20081015, end: 20081019
  3. CYCLOPHOSPHAMIDE [Suspect]
     Indication: ACUTE MYELOID LEUKAEMIA
     Dosage: 50 MG/KG, INTRAVENOUS
     Route: 042
     Dates: start: 20081017, end: 20081018
  4. PROLEUKIN [Suspect]
     Indication: ACUTE MYELOID LEUKAEMIA
     Dosage: 10 MIU, SUBCUTANEOUS
     Route: 058
     Dates: start: 20081021, end: 20081031
  5. THYMOGLOBULIN [Suspect]
     Indication: ACUTE MYELOID LEUKAEMIA
     Dosage: 3 MG/KG, INTRAVENOUS
     Route: 042
     Dates: start: 20081104, end: 20081106
  6. ZOFRAN [Concomitant]
  7. DECADRON [Concomitant]
  8. ATIVAN [Concomitant]
  9. COMPAZINE [Concomitant]
  10. DEFIBROTIDE (DEFIBROTIDE) [Concomitant]
  11. PROTONIX [Concomitant]
  12. MAALOX (MAGNESIUM HYDROXIDE, ALUMINIUM HYDROXIDE GEL) [Concomitant]
  13. URSODIOL [Concomitant]
  14. METOPROLOL TARTRATE [Concomitant]
  15. ACYCLOVIR [Concomitant]
  16. ALLOPURINOL [Concomitant]
  17. HYDROXYUREA [Concomitant]
  18. LISINOPRIL [Concomitant]
  19. MULTIVITAMINS (FOLIC ACID, ERGOCALCIFEROL, PANTHENOL, NICOTINAMIDE, RI [Concomitant]
  20. POTASSIUM GLUCONATE (POTASSIUM GLUCONATE) [Concomitant]
  21. PRILOSEC [Concomitant]
  22. VITAMIN D [Concomitant]
  23. AMPHOTERICIN B [Concomitant]

REACTIONS (32)
  - AGITATION [None]
  - ALANINE AMINOTRANSFERASE INCREASED [None]
  - ASPARTATE AMINOTRANSFERASE INCREASED [None]
  - ASPERGILLOSIS [None]
  - BLOOD ALKALINE PHOSPHATASE INCREASED [None]
  - BLOOD BILIRUBIN INCREASED [None]
  - BLOOD COUNT ABNORMAL [None]
  - CATHETER SITE HAEMORRHAGE [None]
  - CEREBRAL INFARCTION [None]
  - COMPUTERISED TOMOGRAM ABNORMAL [None]
  - DIALYSIS [None]
  - ECG SIGNS OF MYOCARDIAL ISCHAEMIA [None]
  - EMBOLIC CEREBRAL INFARCTION [None]
  - EMBOLISM [None]
  - FLUID OVERLOAD [None]
  - FUNGAL INFECTION [None]
  - FUNGUS STOOL IDENTIFIED [None]
  - HAEMOGLOBIN DECREASED [None]
  - HAEMORRHAGE [None]
  - HAEMORRHAGIC TRANSFORMATION STROKE [None]
  - LUNG INFECTION [None]
  - MENTAL STATUS CHANGES [None]
  - METASTASES TO LUNG [None]
  - MULTI-ORGAN FAILURE [None]
  - OROPHARYNGITIS FUNGAL [None]
  - PLEURAL EFFUSION [None]
  - PULMONARY ALVEOLAR HAEMORRHAGE [None]
  - RENAL INJURY [None]
  - TARDIVE DYSKINESIA [None]
  - THROMBOCYTOPENIA [None]
  - VENOOCCLUSIVE LIVER DISEASE [None]
  - WHITE BLOOD CELL COUNT DECREASED [None]
